FAERS Safety Report 12226496 (Version 1)
Quarter: 2016Q1

REPORT INFORMATION
  Report Type: Report from Study
  Country: BR (occurrence: BR)
  Receive Date: 20160331
  Receipt Date: 20160331
  Transmission Date: 20160526
  Serious: Yes (Other)
  Sender: FDA-Public Use
  Company Number: BR-ABBVIE-16K-020-1592556-00

PATIENT
  Age: 59 Year
  Sex: Female
  Weight: 80 kg

DRUGS (1)
  1. HUMIRA [Suspect]
     Active Substance: ADALIMUMAB
     Indication: RHEUMATOID ARTHRITIS
     Route: 058
     Dates: start: 20140929, end: 201511

REACTIONS (9)
  - Leprosy [Unknown]
  - Leprosy [Recovering/Resolving]
  - Rheumatoid arthritis [Not Recovered/Not Resolved]
  - Rash macular [Recovering/Resolving]
  - Memory impairment [Unknown]
  - Rheumatoid arthritis [Recovered/Resolved]
  - Procedural pain [Unknown]
  - Mass [Recovering/Resolving]
  - Rash pruritic [Recovering/Resolving]

NARRATIVE: CASE EVENT DATE: 201503
